FAERS Safety Report 4287119-3 (Version None)
Quarter: 2004Q1

REPORT INFORMATION
  Report Type: 
  Country: None (occurrence: None)
  Receive Date: 20040205
  Receipt Date: 20040116
  Transmission Date: 20041129
  Serious: Yes (Hospitalization)
  Sender: FDA-Public Use
  Company Number: DE_040112794

PATIENT
  Age: 53 Year
  Sex: Female

DRUGS (4)
  1. HUMALOG [Suspect]
     Indication: DIABETES MELLITUS
     Dates: start: 20030901
  2. LANTUS [Concomitant]
  3. BLOPRESS (CANDESARTAN CILEXETIL) [Concomitant]
  4. SIMVASTATIN [Concomitant]

REACTIONS (5)
  - HEADACHE [None]
  - HYPOGLYCAEMIA [None]
  - PANIC ATTACK [None]
  - TACHYCARDIA [None]
  - THYROID DISORDER [None]
